FAERS Safety Report 10621480 (Version 1)
Quarter: 2014Q4

REPORT INFORMATION
  Report Type: Spontaneous
  Country: US (occurrence: None)
  Receive Date: 20141126
  Receipt Date: 20141126
  Transmission Date: 20150529
  Serious: Yes (Hospitalization)
  Sender: FDA-Public Use
  Company Number: None

PATIENT
  Age: 37 Year
  Sex: Male
  Weight: 60.3 kg

DRUGS (6)
  1. VINCRISTINE SULFATE. [Suspect]
     Active Substance: VINCRISTINE SULFATE
     Dates: end: 20141113
  2. CYCLOPHOSPHAMIDE. [Suspect]
     Active Substance: CYCLOPHOSPHAMIDE
     Dates: end: 20141114
  3. ITRACONAZOLE. [Concomitant]
     Active Substance: ITRACONAZOLE
  4. PREDNISONE. [Suspect]
     Active Substance: PREDNISONE
     Dates: end: 20141114
  5. ETOPOSIDE (VP-16) [Suspect]
     Active Substance: ETOPOSIDE
     Dates: end: 20141113
  6. DOXORUBICIN HYDROCHLORIDE. [Suspect]
     Active Substance: DOXORUBICIN HYDROCHLORIDE
     Dates: end: 20141113

REACTIONS (4)
  - Constipation [None]
  - Dysphagia [None]
  - Drug interaction [None]
  - Abdominal pain [None]

NARRATIVE: CASE EVENT DATE: 20141116
